FAERS Safety Report 7199245-X (Version None)
Quarter: 2010Q4

REPORT INFORMATION
  Report Type: 
  Country: None (occurrence: None)
  Receive Date: 20101215
  Receipt Date: 20101202
  Transmission Date: 20110411
  Serious: Yes (Hospitalization)
  Sender: FDA-Public Use
  Company Number: UK-ACCORD-002094

PATIENT
  Age: 85 Year
  Sex: Female

DRUGS (2)
  1. SIMVASTATIN [Suspect]
     Indication: PRODUCT USED FOR UNKNOWN INDICATION
     Dosage: 20 MG
  2. REUMACON [Suspect]
     Indication: RHEUMATOID ARTHRITIS

REACTIONS (6)
  - BLOOD CREATININE INCREASED [None]
  - CARDIAC FAILURE [None]
  - DEHYDRATION [None]
  - DRUG INTERACTION [None]
  - HYPOPROTEINAEMIA [None]
  - RHABDOMYOLYSIS [None]
